FAERS Safety Report 16347040 (Version 1)
Quarter: 2019Q2

REPORT INFORMATION
  Report Type: Spontaneous
  Country: US (occurrence: US)
  Receive Date: 20190523
  Receipt Date: 20190523
  Transmission Date: 20190711
  Serious: No
  Sender: FDA-Public Use
  Company Number: US-TARO-2018TAR00728

PATIENT
  Sex: Female

DRUGS (2)
  1. TOPICORT [Suspect]
     Active Substance: DESOXIMETASONE
     Indication: SKIN DISORDER
     Dosage: UNK, 2X/WEEK
     Route: 061
  2. CLOBETASOL [Suspect]
     Active Substance: CLOBETASOL
     Indication: SKIN DISORDER
     Dosage: UNK
     Route: 061

REACTIONS (5)
  - Drug ineffective [Unknown]
  - Middle ear effusion [Unknown]
  - Ear discomfort [Unknown]
  - Abnormal dreams [Unknown]
  - Inappropriate schedule of product administration [Recovered/Resolved]
